FAERS Safety Report 8465327-5 (Version None)
Quarter: 2012Q2

REPORT INFORMATION
  Report Type: 
  Country: None (occurrence: None)
  Receive Date: 20120626
  Receipt Date: 20120625
  Transmission Date: 20120825
  Serious: Yes (Death, Other)
  Sender: FDA-Public Use
  Company Number: PHFR2012IE001537

PATIENT
  Sex: Male

DRUGS (4)
  1. VALPROATE SODIUM [Concomitant]
     Indication: SCHIZOAFFECTIVE DISORDER
     Dosage: 1200 MG, QHS
     Route: 048
  2. CLOZARIL [Suspect]
     Indication: SCHIZOPHRENIA
     Dosage: 50MG IN MORNING AND 212.5MG IN NIGHT
     Route: 048
     Dates: start: 20110919
  3. LAMOTRIGINE [Concomitant]
     Indication: SCHIZOAFFECTIVE DISORDER
     Dosage: 200 MG, QHS
     Route: 048
  4. ESCITALOPRAM [Concomitant]
     Indication: DEPRESSION
     Dosage: 10 MG, QD
     Route: 048
     Dates: start: 20120101

REACTIONS (7)
  - SCHIZOPHRENIA, PARANOID TYPE [None]
  - COMPLETED SUICIDE [None]
  - INTENTIONAL SELF-INJURY [None]
  - AGITATION [None]
  - ALCOHOLISM [None]
  - PSYCHOTIC DISORDER [None]
  - CHEMICAL INJURY [None]
